FAERS Safety Report 4610502-0 (Version None)
Quarter: 2005Q1

REPORT INFORMATION
  Report Type: 
  Country: None (occurrence: None)
  Receive Date: 20050316
  Receipt Date: 20041210
  Transmission Date: 20050727
  Serious: Yes (Life-Threatening, Hospitalization, Disabling, Other)
  Sender: FDA-Public Use
  Company Number: US-MERCK-0412USA01336

PATIENT
  Age: 70 Year
  Sex: Female
  Weight: 88 kg

DRUGS (7)
  1. VIOXX [Suspect]
     Indication: OSTEOARTHRITIS
     Route: 048
     Dates: start: 20040513, end: 20041122
  2. VIOXX [Suspect]
     Route: 065
  3. METFORMIN [Concomitant]
     Indication: DIABETES MELLITUS
     Route: 048
     Dates: start: 19900101
  4. LISINOPRIL [Concomitant]
     Indication: HYPERTENSION
     Route: 048
     Dates: start: 19900101
  5. ATENOL [Concomitant]
     Indication: HYPERTENSION
     Route: 048
     Dates: start: 20020221
  6. ULTRAM [Concomitant]
     Indication: OSTEOARTHRITIS
     Route: 048
  7. AMITRIPTYLINE HYDROCHLORIDE [Concomitant]
     Indication: NEUROPATHY
     Route: 048

REACTIONS (5)
  - CHEST PAIN [None]
  - CORONARY ARTERY DISEASE [None]
  - LOSS OF CONSCIOUSNESS [None]
  - PRESCRIBED OVERDOSE [None]
  - URINARY TRACT INFECTION [None]
